FAERS Safety Report 9201539 (Version 3)
Quarter: 2013Q2

REPORT INFORMATION
  Report Type: Spontaneous
  Country: US (occurrence: US)
  Receive Date: 20130401
  Receipt Date: 20130521
  Transmission Date: 20140414
  Serious: Yes (Hospitalization, Other)
  Sender: FDA-Public Use
  Company Number: US-PFIZER INC-2013101195

PATIENT
  Age: 69 Year
  Sex: Female

DRUGS (24)
  1. CELEBREX [Suspect]
     Dosage: UNK
  2. SKELAXIN [Suspect]
     Dosage: UNK
  3. LEVOXYL [Suspect]
     Dosage: UNK
  4. LIPITOR [Suspect]
     Dosage: 20 MG, Q.H.S
  5. AMIODARONE HCL [Suspect]
     Dosage: 100 MG, 1X/DAY
  6. RYTHMOL (PROPAFENONE HYDROCHLORIDE) [Suspect]
     Dosage: UNK
  7. TOPROL [Suspect]
  8. MIRAPEX [Concomitant]
     Dosage: 2 MG
  9. PARAFON FORTE [Concomitant]
     Dosage: 500 MG, 4X/DAY
  10. PRADAXA [Concomitant]
     Dosage: 150 MG, 2X/DAY
  11. TOPROL XL [Concomitant]
     Dosage: 25 MG, 1X/DAY
  12. NORVASC [Concomitant]
     Dosage: 5 MG, 1X/DAY
  13. COZAAR [Concomitant]
     Dosage: 100 MG, 1X/DAY
  14. ACETYLSALICYLIC ACID [Concomitant]
     Dosage: 81 MG, 1X/DAY
  15. ULTRAM [Concomitant]
     Dosage: 50 MG, 4X/DAY
  16. TYLENOL [Concomitant]
     Indication: ARTHRITIS
     Dosage: 2 X 650 MG, 3X/DAY
  17. LASIX [Concomitant]
     Dosage: 40 MG, 1X/DAY
  18. PRILOSEC [Concomitant]
     Dosage: 40 MG, 1X/DAY
  19. LEVOTHYROXINE [Concomitant]
     Dosage: 0.175 MG, 1X/DAY
  20. SPIRIVA [Concomitant]
     Dosage: 18 UG, 1X/DAY
  21. VENTOLIN [Concomitant]
     Dosage: 2 PUFFS Q.4 HOURS PRN
  22. ATORVASTATIN [Concomitant]
     Dosage: 20 MG, 1X/DAY
     Route: 048
  23. LISINOPRIL [Concomitant]
     Dosage: 5 MG, 1X/DAY
     Route: 048
  24. POTASSIUM [Concomitant]
     Dosage: 20 MEQ, 2X/DAY
     Route: 048

REACTIONS (9)
  - Cardiac arrest [Unknown]
  - Chest pain [Unknown]
  - Hypertension [Unknown]
  - Chest discomfort [Unknown]
  - Cardiac failure congestive [Unknown]
  - Chronic obstructive pulmonary disease [Unknown]
  - Sleep apnoea syndrome [Unknown]
  - Hypercholesterolaemia [Unknown]
  - Hypothyroidism [Unknown]
